FAERS Safety Report 9892429 (Version 1)
Quarter: 2014Q1

REPORT INFORMATION
  Report Type: Spontaneous
  Country: US (occurrence: US)
  Receive Date: 20140212
  Receipt Date: 20140212
  Transmission Date: 20141002
  Serious: No
  Sender: FDA-Public Use
  Company Number: US-009507513-1402USA004849

PATIENT
  Age: 47 Year
  Sex: Female

DRUGS (4)
  1. DULERA [Suspect]
     Indication: ASTHMA
     Dosage: 200 DOSE TWICE A DAY; IINHALER
     Route: 055
     Dates: start: 20110819, end: 2013
  2. DULERA [Suspect]
     Dosage: 100 DOSE TWICE A DAY; INHALER
     Route: 055
     Dates: start: 2013
  3. SINGULAIR [Concomitant]
  4. PRILOSEC [Concomitant]

REACTIONS (1)
  - Arrhythmia [Unknown]
